FAERS Safety Report 8012530-4 (Version None)
Quarter: 2011Q4

REPORT INFORMATION
  Report Type: 
  Country: None (occurrence: None)
  Receive Date: 20111229
  Receipt Date: 20111221
  Transmission Date: 20120403
  Serious: Yes (Hospitalization)
  Sender: FDA-Public Use
  Company Number: DE-BIOGENIDEC-2011BI027450

PATIENT
  Age: 30 Year
  Sex: Female
  Weight: 57 kg

DRUGS (2)
  1. AVONEX [Suspect]
     Indication: MULTIPLE SCLEROSIS
     Route: 030
     Dates: start: 20110201, end: 20110716
  2. AVONEX [Suspect]
     Route: 030
     Dates: end: 20110830

REACTIONS (4)
  - INFLUENZA [None]
  - PYREXIA [None]
  - EPILEPSY [None]
  - NASOPHARYNGITIS [None]
